FAERS Safety Report 9215468 (Version 1)
Quarter: 2013Q2

REPORT INFORMATION
  Report Type: Report from Study
  Country: DK (occurrence: DK)
  Receive Date: 20130406
  Receipt Date: 20130406
  Transmission Date: 20140414
  Serious: Yes (Other)
  Sender: FDA-Public Use
  Company Number: DK-ACCORD-017057

PATIENT
  Sex: Female

DRUGS (3)
  1. LEVETIRACETAM [Suspect]
     Indication: EPILEPSY
     Dosage: DAILY DOSE OF 2500
  2. LAMOTRIGINE [Concomitant]
     Indication: EPILEPSY
  3. VALPROIC ACID [Concomitant]
     Indication: EPILEPSY

REACTIONS (2)
  - Stillbirth [Unknown]
  - Pregnancy [Recovered/Resolved]
